FAERS Safety Report 9804074 (Version 1)
Quarter: 2014Q1

REPORT INFORMATION
  Report Type: Spontaneous
  Country: DE (occurrence: None)
  Receive Date: 20140103
  Receipt Date: 20140103
  Transmission Date: 20141002
  Serious: Yes (Life-Threatening, Hospitalization, Congenital Anomaly, Other)
  Sender: FDA-Public Use
  Company Number: 2094759

PATIENT
  Age: 1 Day
  Sex: Male
  Weight: 2.8 kg

DRUGS (7)
  1. EPIRUBICIN HYDROCHLORIDE [Suspect]
     Indication: BREAST CANCER
     Dosage: 156 MG/ TWICE DURING PREGN. 14.9 AND 05.10.
     Route: 064
     Dates: start: 20120914, end: 20121005
  2. CYCLOPHOSPHAMIDE [Suspect]
     Indication: BREAST CANCER
     Dosage: 1040 MG/TWICE DURING PREGN. 14.9. AND 05.10.
     Route: 064
     Dates: start: 20120914, end: 20121005
  3. LAMOTRIGIN [Suspect]
     Indication: EPILEPSY
     Dosage: 300 MG/D/BEGIN OF PREGN: 2X50 MG; IN THE END 2X50 MG
     Route: 064
     Dates: start: 20120211, end: 20121029
  4. FOLIC ACID [Concomitant]
  5. FILGRASTIM [Concomitant]
  6. DEXAMETHASONE [Concomitant]
  7. ONDANSETRON [Concomitant]

REACTIONS (4)
  - Neonatal respiratory distress syndrome [None]
  - Hypospadias [None]
  - Pulmonary artery stenosis congenital [None]
  - Maternal drugs affecting foetus [None]
